FAERS Safety Report 9835674 (Version 1)
Quarter: 2014Q1

REPORT INFORMATION
  Report Type: Spontaneous
  Country: GB (occurrence: GB)
  Receive Date: 20140122
  Receipt Date: 20140122
  Transmission Date: 20141002
  Serious: Yes (Other)
  Sender: FDA-Public Use
  Company Number: GB-WATSON-2014-00247

PATIENT
  Age: 74 Year
  Sex: 0

DRUGS (1)
  1. PIROXICAM (UNKNOWN) [Suspect]
     Indication: PAIN
     Dosage: 1 DF, TID
     Route: 065
     Dates: start: 20131125, end: 20131127

REACTIONS (1)
  - Skin exfoliation [Recovered/Resolved]
